FAERS Safety Report 15781536 (Version 2)
Quarter: 2019Q1

REPORT INFORMATION
  Report Type: Report from Study
  Country: None (occurrence: US)
  Receive Date: 20190102
  Receipt Date: 20190122
  Transmission Date: 20190417
  Serious: Yes (Hospitalization, Other)
  Sender: FDA-Public Use
  Company Number: US-ABBVIE-18S-163-2606094-00

PATIENT
  Age: 51 Year
  Sex: Male

DRUGS (1)
  1. CREON [Suspect]
     Active Substance: PANCRELIPASE AMYLASE\PANCRELIPASE LIPASE\PANCRELIPASE PROTEASE
     Indication: PRODUCT USED FOR UNKNOWN INDICATION
     Route: 048

REACTIONS (18)
  - Pancreatitis [Unknown]
  - Computerised tomogram abdomen abnormal [Unknown]
  - Pancreatic mass [Unknown]
  - Bowel movement irregularity [Unknown]
  - Glycosylated haemoglobin increased [Unknown]
  - Hypercalcaemia [Unknown]
  - Pancreatic failure [Unknown]
  - Joint swelling [Unknown]
  - Microcytosis [Unknown]
  - Haemoglobin increased [Unknown]
  - Malaise [Unknown]
  - Arthralgia [Unknown]
  - Pancreatitis chronic [Unknown]
  - Immunisation [Unknown]
  - Dry mouth [Unknown]
  - Weight decreased [Unknown]
  - Essential hypertension [Unknown]
  - Thirst [Unknown]

NARRATIVE: CASE EVENT DATE: 2009
